FAERS Safety Report 21077229 (Version 1)
Quarter: 2022Q3

REPORT INFORMATION
  Report Type: Spontaneous
  Country: US (occurrence: None)
  Receive Date: 20220713
  Receipt Date: 20220713
  Transmission Date: 20221026
  Serious: No
  Sender: FDA-Public Use
  Company Number: None

PATIENT
  Age: 67 Year
  Sex: Male

DRUGS (1)
  1. CAPECITABINE [Suspect]
     Active Substance: CAPECITABINE
     Dosage: 1000MG BID ORAL?
     Route: 048

REACTIONS (2)
  - Ulcer haemorrhage [None]
  - Off label use [None]

NARRATIVE: CASE EVENT DATE: 20220713
